FAERS Safety Report 7265194-1 (Version None)
Quarter: 2011Q1

REPORT INFORMATION
  Report Type: 
  Country: None (occurrence: None)
  Receive Date: 20110119
  Receipt Date: 20110111
  Transmission Date: 20110831
  Serious: Yes (Other)
  Sender: FDA-Public Use
  Company Number: 2010SP063259

PATIENT
  Age: 43 Year
  Sex: Female

DRUGS (1)
  1. SAPHRIS [Suspect]
     Indication: BIPOLAR DISORDER
     Dosage: (10 MG) (5 MG; BID; SL)
     Route: 060
     Dates: start: 20101117, end: 20101203

REACTIONS (2)
  - WEIGHT INCREASED [None]
  - GRAVITATIONAL OEDEMA [None]
